FAERS Safety Report 18102198 (Version 1)
Quarter: 2020Q3

REPORT INFORMATION
  Report Type: Spontaneous
  Country: CN (occurrence: CN)
  Receive Date: 20200803
  Receipt Date: 20200803
  Transmission Date: 20201103
  Serious: Yes (Other)
  Sender: FDA-Public Use
  Company Number: CN-ROCHE-2651368

PATIENT
  Age: 33 Year
  Sex: Male

DRUGS (9)
  1. MYCOPHENOLATE MOFETIL. [Suspect]
     Active Substance: MYCOPHENOLATE MOFETIL
     Indication: ACUTE MYELOID LEUKAEMIA
     Route: 065
     Dates: start: 20191224
  2. CLADRIBINE. [Concomitant]
     Active Substance: CLADRIBINE
     Indication: ACUTE MYELOID LEUKAEMIA
     Dates: start: 20191201
  3. BUSULFAN. [Concomitant]
     Active Substance: BUSULFAN
     Indication: ACUTE MYELOID LEUKAEMIA
     Dates: start: 20191201
  4. CYTARABINE. [Concomitant]
     Active Substance: CYTARABINE
     Indication: ACUTE MYELOID LEUKAEMIA
     Dates: start: 20191201
  5. METHYLPREDNISOLONE. [Concomitant]
     Active Substance: METHYLPREDNISOLONE
     Indication: ACUTE MYELOID LEUKAEMIA
     Dates: start: 20200101
  6. CYCLOSPORIN [Concomitant]
     Active Substance: CYCLOSPORINE
     Indication: ACUTE MYELOID LEUKAEMIA
     Dates: start: 20191216
  7. METHOTREXATE. [Concomitant]
     Active Substance: METHOTREXATE
     Indication: ACUTE MYELOID LEUKAEMIA
     Dates: start: 20191224
  8. METHOTREXATE. [Concomitant]
     Active Substance: METHOTREXATE
     Dates: start: 20191226
  9. AZACITIDINE. [Concomitant]
     Active Substance: AZACITIDINE
     Indication: ACUTE MYELOID LEUKAEMIA
     Dates: start: 20200101

REACTIONS (2)
  - Graft versus host disease [Unknown]
  - Mouth ulceration [Unknown]

NARRATIVE: CASE EVENT DATE: 2020
